FAERS Safety Report 5352518-5 (Version None)
Quarter: 2007Q2

REPORT INFORMATION
  Report Type: 
  Country: None (occurrence: None)
  Receive Date: 20070518
  Receipt Date: 20070105
  Transmission Date: 20071010
  Serious: Yes (Hospitalization)
  Sender: FDA-Public Use
  Company Number: Q06-044

PATIENT
  Sex: Male
  Weight: 107 kg

DRUGS (11)
  1. SAMARIUM SM-153 [Suspect]
     Indication: METASTASES TO BONE
     Dosage: 1.25 MCI/KG IV
     Route: 042
     Dates: start: 20060727
  2. SAMARIUM SM-153 [Suspect]
     Indication: PROSTATE CANCER
     Dosage: 1.25 MCI/KG IV
     Route: 042
     Dates: start: 20060727
  3. ZOLEDRONIC ACID [Suspect]
     Indication: METASTASES TO BONE
     Dosage: 4 MG IV Q4WKS
     Route: 042
     Dates: start: 20060728
  4. ZOLEDRONIC ACID [Suspect]
     Indication: PROSTATE CANCER
     Dosage: 4 MG IV Q4WKS
     Route: 042
     Dates: start: 20060728
  5. ZOLEDRONIC ACID [Suspect]
     Indication: METASTASES TO BONE
     Dosage: 4 MG IV Q4WKS
     Route: 042
     Dates: start: 20060822
  6. ZOLEDRONIC ACID [Suspect]
     Indication: PROSTATE CANCER
     Dosage: 4 MG IV Q4WKS
     Route: 042
     Dates: start: 20060822
  7. MS CONTIN [Concomitant]
  8. HYDROCODONE BITARTRATE [Concomitant]
  9. APAP TAB [Concomitant]
  10. PROMETHAZINE [Concomitant]
  11. VITAMIN CAP [Concomitant]

REACTIONS (4)
  - BONE PAIN [None]
  - CHEST PAIN [None]
  - NAUSEA [None]
  - VOMITING [None]
